FAERS Safety Report 17363007 (Version 2)
Quarter: 2020Q1

REPORT INFORMATION
  Report Type: Spontaneous
  Country: US (occurrence: US)
  Receive Date: 20200203
  Receipt Date: 20200212
  Transmission Date: 20200409
  Serious: No
  Sender: FDA-Public Use
  Company Number: US-VERTEX PHARMACEUTICALS-2020-001611

PATIENT
  Age: 37 Year
  Sex: Female
  Weight: 63 kg

DRUGS (6)
  1. PANCREASE [PANCREATIN] [Concomitant]
     Dosage: UNK
  2. SODIUM CHLORIDE. [Concomitant]
     Active Substance: SODIUM CHLORIDE
     Dosage: UNK
  3. ARIKAYCE [Concomitant]
     Active Substance: AMIKACIN
     Dosage: UNK
  4. COLISTIMETHATE [COLISTIMETHATE SODIUM] [Concomitant]
     Active Substance: COLISTIMETHATE SODIUM
     Dosage: UNK
  5. PROAIR [FLUTICASONE PROPIONATE] [Concomitant]
     Active Substance: FLUTICASONE PROPIONATE
     Dosage: UNK
  6. TRIKAFTA [Suspect]
     Active Substance: ELEXACAFTOR\IVACAFTOR\TEZACAFTOR
     Indication: CYSTIC FIBROSIS
     Dosage: (100 MG ELEXACAFTOR/ 50 MG TEZACAFTOR/ 75 MG IVACAFTOR; 150MG IVACAFTOR), BID
     Route: 048
     Dates: start: 20200115

REACTIONS (10)
  - Visual impairment [Unknown]
  - Pyrexia [Unknown]
  - Lower respiratory tract congestion [Not Recovered/Not Resolved]
  - Abdominal pain [Unknown]
  - Nausea [Unknown]
  - Dysmenorrhoea [Recovered/Resolved]
  - Sputum discoloured [Not Recovered/Not Resolved]
  - Abdominal pain upper [Unknown]
  - Viral infection [Not Recovered/Not Resolved]
  - Abdominal pain lower [Unknown]

NARRATIVE: CASE EVENT DATE: 2020
